FAERS Safety Report 25709688 (Version 1)
Quarter: 2025Q3

REPORT INFORMATION
  Report Type: Spontaneous
  Country: US (occurrence: None)
  Receive Date: 20250820
  Receipt Date: 20250820
  Transmission Date: 20251021
  Serious: No
  Sender: FDA-CTU
  Company Number: None

PATIENT
  Age: 48 Year

DRUGS (1)
  1. ADEMPAS [Suspect]
     Active Substance: RIOCIGUAT
     Indication: Pulmonary hypertension
     Dosage: 0.5MG TID ORAL
     Route: 048
     Dates: start: 20240502, end: 20241231

REACTIONS (2)
  - Renal cancer [None]
  - Nephrectomy [None]

NARRATIVE: CASE EVENT DATE: 20241231
